FAERS Safety Report 9543430 (Version 1)
Quarter: 2013Q3

REPORT INFORMATION
  Report Type: Spontaneous
  Country: US (occurrence: US)
  Receive Date: 20130923
  Receipt Date: 20130923
  Transmission Date: 20140515
  Serious: No
  Sender: FDA-Public Use
  Company Number: US-PFIZER INC-2013272687

PATIENT
  Age: 72 Year
  Sex: Male
  Weight: 83.9 kg

DRUGS (5)
  1. VIAGRA [Suspect]
     Dosage: 100 MG, AS NEEDED
     Route: 048
     Dates: start: 1999, end: 2007
  2. VIAGRA [Suspect]
     Dosage: 100 MG, AS NEEDED
     Dates: start: 2013
  3. LEVITRA [Suspect]
     Dosage: 20 MG, AS NEEDED
     Dates: start: 2007, end: 201308
  4. CRESTOR [Concomitant]
     Indication: BLOOD CHOLESTEROL INCREASED
     Dosage: 20 MG, UNK
  5. OMEPRAZOLE [Concomitant]
     Dosage: 20 MG, 1X/DAY

REACTIONS (2)
  - Drug ineffective [Unknown]
  - Product quality issue [Unknown]
